FAERS Safety Report 15579055 (Version 7)
Quarter: 2019Q1

REPORT INFORMATION
  Report Type: Spontaneous
  Country: US (occurrence: US)
  Receive Date: 20181102
  Receipt Date: 20190313
  Transmission Date: 20190417
  Serious: Yes (Death, Life-Threatening, Hospitalization, Other)
  Sender: FDA-Public Use
  Company Number: US-PFIZER INC-2018447820

PATIENT
  Age: 59 Year
  Sex: Male

DRUGS (13)
  1. XANAX [Suspect]
     Active Substance: ALPRAZOLAM
     Indication: ANXIETY
     Dosage: 1 MG, 2X/DAY
     Dates: start: 20140418
  2. DULOXETINE HCL [Concomitant]
     Active Substance: DULOXETINE HYDROCHLORIDE
     Dosage: 90 MG, 1X/DAY  (DULOXETINE HCL 30 MG AND 60 MG BOTH 1 X DAY )
  3. SIMVASTATIN. [Concomitant]
     Active Substance: SIMVASTATIN
     Dosage: 20 MG, 1X/DAY
  4. XANAX [Suspect]
     Active Substance: ALPRAZOLAM
     Dosage: UNK
     Dates: start: 20180913
  5. ROPINIROLE. [Concomitant]
     Active Substance: ROPINIROLE
     Dosage: 2 MG, 1X/DAY (ROPINIROLE 2 MG 1 AT BEDTIME )
  6. HYDROCODONE [Suspect]
     Active Substance: HYDROCODONE
     Dosage: UNK
  7. PANTOPRAZOLE [Concomitant]
     Active Substance: PANTOPRAZOLE
     Dosage: 40 MG, 1X/DAY
  8. CILOSTAZOL. [Concomitant]
     Active Substance: CILOSTAZOL
     Dosage: 100 MG, 2X/DAY
  9. CLOPIDOGREL BISULFATE. [Concomitant]
     Active Substance: CLOPIDOGREL BISULFATE
     Dosage: 75 MG, 1X/DAY (75 MG 1X DAY )
  10. BUPROPION HYDROCHLORIDE XL [Concomitant]
     Active Substance: BUPROPION HYDROCHLORIDE
     Dosage: 300 MG, 1X/DAY (BUPROPION HCL 300 MG 24 HAVE TABLET ONCE IN THE MORNING  )
  11. XANAX [Suspect]
     Active Substance: ALPRAZOLAM
     Dosage: UNK
     Dates: start: 20180912
  12. OPANA [Suspect]
     Active Substance: OXYMORPHONE HYDROCHLORIDE
     Dosage: UNK (TOOK ^ONE^ OPANA (UNSURE IF WAS A HALF TABLET OR FULL TABLET)
     Dates: start: 20180912, end: 20180912
  13. OXYCODONE [Concomitant]
     Active Substance: OXYCODONE
     Dosage: UNK

REACTIONS (12)
  - Intentional product misuse [Fatal]
  - Cardiac failure congestive [Fatal]
  - Cyanosis [Unknown]
  - Toxicity to various agents [Unknown]
  - Overdose [Fatal]
  - Pneumonia aspiration [Unknown]
  - Anxiety [Fatal]
  - Dyspnoea [Fatal]
  - Delirium [Recovered/Resolved]
  - Acute respiratory distress syndrome [Fatal]
  - Malaise [Fatal]
  - Vomiting [Fatal]

NARRATIVE: CASE EVENT DATE: 20180912
